FAERS Safety Report 13947527 (Version 1)
Quarter: 2017Q3

REPORT INFORMATION
  Report Type: Spontaneous
  Country: GB (occurrence: GB)
  Receive Date: 20170908
  Receipt Date: 20170908
  Transmission Date: 20171128
  Serious: Yes (Other)
  Sender: FDA-Public Use
  Company Number: GB-CIPLA LTD.-2017GB15709

PATIENT

DRUGS (9)
  1. GEMCITABINE [Suspect]
     Active Substance: GEMCITABINE\GEMCITABINE HYDROCHLORIDE
     Indication: NONGERMINOMATOUS GERM CELL TUMOUR OF THE CNS
     Dosage: 800 MG/M2, CYCLIC
     Route: 065
     Dates: start: 20161122
  2. GEMCITABINE [Suspect]
     Active Substance: GEMCITABINE\GEMCITABINE HYDROCHLORIDE
     Dosage: 800 MG/M2, CYCLIC
     Route: 065
     Dates: start: 20161207
  3. PACLITAXEL. [Suspect]
     Active Substance: PACLITAXEL
     Dosage: 170 MG/M2, CYCLIC
     Route: 065
     Dates: start: 20170105
  4. OXALIPLATIN. [Suspect]
     Active Substance: OXALIPLATIN
     Indication: NONGERMINOMATOUS GERM CELL TUMOUR OF THE CNS
     Dosage: 100 MG/M2, CYCLIC
     Route: 065
     Dates: start: 20161207
  5. OXALIPLATIN. [Suspect]
     Active Substance: OXALIPLATIN
     Dosage: 100 MG/M2, CYCLIC
     Route: 065
     Dates: start: 20170105
  6. PACLITAXEL. [Suspect]
     Active Substance: PACLITAXEL
     Indication: NONGERMINOMATOUS GERM CELL TUMOUR OF THE CNS
     Dosage: 170 MG/M2, CYCLIC
     Route: 065
     Dates: start: 20161122
  7. PACLITAXEL. [Suspect]
     Active Substance: PACLITAXEL
     Dosage: 170 MG/M2, CYCLIC
     Route: 065
     Dates: start: 20161207
  8. OXALIPLATIN. [Suspect]
     Active Substance: OXALIPLATIN
     Dosage: 100 MG/M2, CYCLIC
     Route: 065
     Dates: start: 20161122
  9. GEMCITABINE [Suspect]
     Active Substance: GEMCITABINE\GEMCITABINE HYDROCHLORIDE
     Dosage: 800 MG/M2, CYCLIC
     Route: 065
     Dates: start: 20170105

REACTIONS (2)
  - Pancytopenia [Unknown]
  - Brain teratoma [Unknown]
